FAERS Safety Report 9846598 (Version 2)
Quarter: 2014Q2

REPORT INFORMATION
  Report Type: Spontaneous
  Country: BR (occurrence: BR)
  Receive Date: 20140127
  Receipt Date: 20140410
  Transmission Date: 20141212
  Serious: Yes (Other)
  Sender: FDA-Public Use
  Company Number: BR-GLAXOSMITHKLINE-A1058129A

PATIENT
  Age: 46 Year
  Sex: 0

DRUGS (1)
  1. VOTRIENT [Suspect]
     Indication: PRODUCT USED FOR UNKNOWN INDICATION
     Route: 048
     Dates: start: 201301, end: 201311

REACTIONS (3)
  - Angina pectoris [Recovered/Resolved]
  - Coronary artery occlusion [Recovered/Resolved]
  - Arterial thrombosis [Recovered/Resolved]
